FAERS Safety Report 24225821 (Version 3)
Quarter: 2024Q3

REPORT INFORMATION
  Report Type: Report from Study
  Country: ES (occurrence: ES)
  Receive Date: 20240820
  Receipt Date: 20240902
  Transmission Date: 20241016
  Serious: Yes (Hospitalization)
  Sender: ABBVIE
  Company Number: ES-ABBVIE-5881913

PATIENT
  Sex: Female

DRUGS (2)
  1. CARBIDOPA\LEVODOPA [Suspect]
     Active Substance: CARBIDOPA\LEVODOPA
     Indication: Parkinson^s disease
     Route: 050
     Dates: start: 20220428, end: 202408
  2. CARBIDOPA\LEVODOPA [Suspect]
     Active Substance: CARBIDOPA\LEVODOPA
     Dosage: RESTARTED
     Route: 050
     Dates: start: 202408

REACTIONS (8)
  - Loss of consciousness [Recovering/Resolving]
  - Fall [Unknown]
  - Device issue [Unknown]
  - Device kink [Unknown]
  - Apathy [Unknown]
  - Hypotension [Recovering/Resolving]
  - Arthropathy [Unknown]
  - Injury [Unknown]

NARRATIVE: CASE EVENT DATE: 20240101
